FAERS Safety Report 5391846-4 (Version None)
Quarter: 2007Q3

REPORT INFORMATION
  Report Type: 
  Country: None (occurrence: None)
  Receive Date: 20070718
  Receipt Date: 20070709
  Transmission Date: 20080115
  Serious: Yes (Death, Life-Threatening)
  Sender: FDA-Public Use
  Company Number: 2007SP002495

PATIENT

DRUGS (1)
  1. LUNESTA [Suspect]
     Dosage: ORAL
     Route: 048
     Dates: start: 20050101, end: 20050101

REACTIONS (1)
  - OVERDOSE [None]
